FAERS Safety Report 8791059 (Version 1)
Quarter: 2012Q4

REPORT INFORMATION
  Report Type: Spontaneous
  Country: US (occurrence: None)
  Receive Date: 20120907
  Receipt Date: 20120907
  Transmission Date: 20130627
  Serious: Yes (Other)
  Sender: FDA-Public Use
  Company Number: DSA_59328_2012

PATIENT

DRUGS (5)
  1. FLUOROURACIL [Suspect]
     Indication: HEAD AND NECK CANCER
     Dosage: (1000 mg/m2 daily intravenous)
     Route: 042
  2. CISPLATIN [Suspect]
     Indication: HEAD AND NECK CANCER
     Dosage: (20 mg/m2 intravenous daily)
     Route: 042
  3. THERAPEUTIC RADIOPHARMCEUTICALS [Suspect]
     Indication: HEAD AND NECK CANCER
     Dosage: (DF)
  4. ANTIEMETICS AND ANTINAUSEANTS [Concomitant]
  5. I.V. SOLUTIONS [Concomitant]

REACTIONS (1)
  - Skin toxicity [None]
